FAERS Safety Report 22089761 (Version 3)
Quarter: 2023Q2

REPORT INFORMATION
  Report Type: Spontaneous
  Country: US (occurrence: None)
  Receive Date: 20230313
  Receipt Date: 20230517
  Transmission Date: 20230721
  Serious: Yes (Life-Threatening, Hospitalization, Disabling, Other)
  Sender: FDA-Public Use
  Company Number: 2023A055708

PATIENT
  Age: 17521 Day
  Sex: Male
  Weight: 96.6 kg

DRUGS (6)
  1. SYMBICORT [Suspect]
     Active Substance: BUDESONIDE\FORMOTEROL FUMARATE DIHYDRATE
     Indication: Chronic obstructive pulmonary disease
     Dosage: 160/4.5 TWO TIMES A DAY
     Route: 055
     Dates: start: 20210210
  2. SYMBICORT [Suspect]
     Active Substance: BUDESONIDE\FORMOTEROL FUMARATE DIHYDRATE
     Indication: Chronic obstructive pulmonary disease
     Dosage: TWO TIMES A DAY
     Route: 055
  3. BREZTRI [Suspect]
     Active Substance: BUDESONIDE\FORMOTEROL\GLYCOPYRROLATE
     Indication: Chronic obstructive pulmonary disease
     Dosage: ONE PUFF TWICE A DAY
     Route: 055
     Dates: start: 20230304
  4. BREZTRI [Suspect]
     Active Substance: BUDESONIDE\FORMOTEROL\GLYCOPYRROLATE
     Indication: Blood cholesterol
     Dosage: ONE PUFF TWICE A DAY
     Route: 055
     Dates: start: 20230304
  5. BREZTRI [Suspect]
     Active Substance: BUDESONIDE\FORMOTEROL\GLYCOPYRROLATE
     Indication: Chronic obstructive pulmonary disease
     Dosage: ONE PUFF TWICE A DAY TWO TIMES A DAY
     Route: 055
     Dates: start: 20230302, end: 20230304
  6. BREZTRI [Suspect]
     Active Substance: BUDESONIDE\FORMOTEROL\GLYCOPYRROLATE
     Indication: Blood cholesterol
     Dosage: ONE PUFF TWICE A DAY TWO TIMES A DAY
     Route: 055
     Dates: start: 20230302, end: 20230304

REACTIONS (21)
  - Blindness unilateral [Unknown]
  - Dyspnoea [Unknown]
  - Medical induction of coma [Unknown]
  - Sternal fracture [Unknown]
  - Cardiac arrest [Unknown]
  - Viral infection [Unknown]
  - Pneumonia [Unknown]
  - Cardiac failure congestive [Unknown]
  - Single functional kidney [Unknown]
  - Glaucoma [Unknown]
  - Haemorrhage [Unknown]
  - Purulent discharge [Unknown]
  - Tunnel vision [Unknown]
  - Renal impairment [Unknown]
  - Body height decreased [Unknown]
  - Spinal osteoarthritis [Unknown]
  - Cough [Unknown]
  - Product communication issue [Unknown]
  - Drug ineffective [Unknown]
  - Product dose omission issue [Unknown]
  - Incorrect dose administered [Unknown]

NARRATIVE: CASE EVENT DATE: 19900912
